FAERS Safety Report 6906704-0 (Version None)
Quarter: 2010Q3

REPORT INFORMATION
  Report Type: 
  Country: None (occurrence: None)
  Receive Date: 20100804
  Receipt Date: 20100727
  Transmission Date: 20110219
  Serious: Yes (Hospitalization, Other)
  Sender: FDA-Public Use
  Company Number: US-AMGEN-QUU423375

PATIENT
  Sex: Male
  Weight: 89 kg

DRUGS (21)
  1. NPLATE [Suspect]
     Indication: IDIOPATHIC THROMBOCYTOPENIC PURPURA
     Route: 058
     Dates: start: 20100428
  2. CORTICOSTEROIDS [Concomitant]
     Dates: start: 20100403
  3. IMMU-G [Concomitant]
     Dates: start: 20100403
  4. LEXAPRO [Concomitant]
     Route: 048
     Dates: start: 20100514
  5. UNSPECIFIED MEDICATION [Concomitant]
  6. VITAMIN A [Concomitant]
     Route: 048
  7. PROTONIX [Concomitant]
     Route: 048
  8. AMBIEN [Concomitant]
     Route: 048
     Dates: start: 20100504
  9. PREDNISONE [Concomitant]
     Route: 048
     Dates: start: 20100409, end: 20100712
  10. INDERAL [Concomitant]
     Dates: start: 20100404
  11. ZOMIG [Concomitant]
     Route: 048
  12. RITUXAN [Concomitant]
     Route: 042
     Dates: start: 20100505, end: 20100506
  13. LANOXIN [Concomitant]
  14. CARDIZEM CD [Concomitant]
     Route: 048
  15. LACTOBACILLUS ACIDOPHILUS [Concomitant]
     Route: 048
  16. TUMS [Concomitant]
     Route: 048
  17. MUCINEX [Concomitant]
  18. PLATELETS [Concomitant]
  19. RED BLOOD CELLS [Concomitant]
  20. AMLODIPINE [Concomitant]
  21. TESSALON [Concomitant]

REACTIONS (15)
  - ATELECTASIS [None]
  - ATRIAL FIBRILLATION [None]
  - CARDIAC FAILURE CONGESTIVE [None]
  - DEVICE RELATED SEPSIS [None]
  - HELICOBACTER TEST POSITIVE [None]
  - HICCUPS [None]
  - HYPERTENSION [None]
  - HYPOXIA [None]
  - ILEUS PARALYTIC [None]
  - PLATELET COUNT DECREASED [None]
  - PLEURAL EFFUSION [None]
  - SLEEP APNOEA SYNDROME [None]
  - STAPHYLOCOCCAL SEPSIS [None]
  - STRIDOR [None]
  - SYNCOPE [None]
